FAERS Safety Report 13943469 (Version 1)
Quarter: 2017Q3

REPORT INFORMATION
  Report Type: Spontaneous
  Country: SI (occurrence: SI)
  Receive Date: 20170907
  Receipt Date: 20170907
  Transmission Date: 20171128
  Serious: Yes (Life-Threatening, Hospitalization)
  Sender: FDA-Public Use
  Company Number: SI-TEVA-802323ACC

PATIENT
  Age: 71 Year
  Sex: Female

DRUGS (12)
  1. ZALDIAR [Concomitant]
     Active Substance: ACETAMINOPHEN\TRAMADOL HYDROCHLORIDE
     Dosage: 2 DOSAGE FORMS DAILY; 2X1/DAY
  2. ARCOXIA [Concomitant]
     Active Substance: ETORICOXIB
  3. PRENESSA 4 MG [Concomitant]
  4. ATORIS 20 MG [Concomitant]
  5. XALATAN [Concomitant]
     Active Substance: LATANOPROST
  6. ASPIRIN PROTECT 100MG [Concomitant]
  7. DETRALEX [Concomitant]
     Active Substance: DIOSMIN\HESPERIDIN
  8. BOPACATIN 10 MG / ML [Suspect]
     Active Substance: CARBOPLATIN
     Indication: OVARIAN CANCER
     Route: 042
     Dates: start: 20170628, end: 20170727
  9. CONCOR COR 2.5MG [Concomitant]
  10. PRENEWEL 4 MG/ 1.25 MG TABLET [Concomitant]
  11. CAELYX 2 MG/ML [Suspect]
     Active Substance: DOXORUBICIN HYDROCHLORIDE
     Indication: OVARIAN CANCER
     Route: 042
     Dates: start: 20170628, end: 20170727
  12. AZOPT [Concomitant]
     Active Substance: BRINZOLAMIDE

REACTIONS (2)
  - Pulmonary embolism [Unknown]
  - Pulmonary infarction [Unknown]

NARRATIVE: CASE EVENT DATE: 20170807
